FAERS Safety Report 5031720-6 (Version None)
Quarter: 2006Q2

REPORT INFORMATION
  Report Type: 
  Country: None (occurrence: None)
  Receive Date: 20060621
  Receipt Date: 20060612
  Transmission Date: 20061013
  Serious: Yes (Other)
  Sender: FDA-Public Use
  Company Number: IT-AVENTIS-200616325GDDC

PATIENT
  Sex: Female

DRUGS (1)
  1. LANTUS [Suspect]
     Indication: DIABETES MELLITUS INSULIN-DEPENDENT
     Route: 058

REACTIONS (2)
  - OEDEMA PERIPHERAL [None]
  - WEIGHT INCREASED [None]
